FAERS Safety Report 4288166-8 (Version None)
Quarter: 2004Q1

REPORT INFORMATION
  Report Type: 
  Country: None (occurrence: None)
  Receive Date: 20040209
  Receipt Date: 20030828
  Transmission Date: 20041129
  Serious: No
  Sender: FDA-Public Use
  Company Number: US-GLAXOSMITHKLINE-A0424008A

PATIENT
  Age: 94 Year
  Sex: Female

DRUGS (2)
  1. PAXIL [Suspect]
     Route: 048
  2. ZOLOFT [Suspect]

REACTIONS (2)
  - HEART RATE IRREGULAR [None]
  - SUFFOCATION FEELING [None]
